FAERS Safety Report 16668333 (Version 1)
Quarter: 2019Q3

REPORT INFORMATION
  Report Type: Spontaneous
  Country: US (occurrence: US)
  Receive Date: 20190805
  Receipt Date: 20190805
  Transmission Date: 20191004
  Serious: Yes (Other)
  Sender: FDA-Public Use
  Company Number: US-009507513-1908USA001073

PATIENT
  Sex: Female
  Weight: 83.45 kg

DRUGS (4)
  1. LEVOTHYROXINE SODIUM (+) LIOTHYRONINE SODIUM [Concomitant]
  2. VALACYCLOVIR HYDROCHLORIDE. [Concomitant]
     Active Substance: VALACYCLOVIR HYDROCHLORIDE
  3. HYDROXYZINE [Concomitant]
     Active Substance: HYDROXYZINE HYDROCHLORIDE
  4. NEXPLANON [Suspect]
     Active Substance: ETONOGESTREL
     Indication: CONTRACEPTION
     Dosage: 1 DOSAGE FORM
     Route: 059
     Dates: start: 2016, end: 20190725

REACTIONS (4)
  - Increased tendency to bruise [Recovered/Resolved]
  - Haemorrhage [Recovered/Resolved]
  - Medical device site discomfort [Recovered/Resolved]
  - Hypomenorrhoea [Recovered/Resolved]
